FAERS Safety Report 19282827 (Version 1)
Quarter: 2021Q2

REPORT INFORMATION
  Report Type: Spontaneous
  Country: US (occurrence: US)
  Receive Date: 20210521
  Receipt Date: 20210521
  Transmission Date: 20210717
  Serious: No
  Sender: FDA-Public Use
  Company Number: US-ALKEM LABORATORIES LIMITED-US-ALKEM-2021-01669

PATIENT
  Sex: Female

DRUGS (1)
  1. AMPHETAMINE SULFATE. [Suspect]
     Active Substance: AMPHETAMINE SULFATE
     Indication: NARCOLEPSY
     Dosage: 5 MILLIGRAM, QID
     Route: 065

REACTIONS (1)
  - Maternal exposure during breast feeding [Unknown]
